FAERS Safety Report 5769022-2 (Version None)
Quarter: 2008Q2

REPORT INFORMATION
  Report Type: 
  Country: None (occurrence: None)
  Receive Date: 20080612
  Receipt Date: 20080316
  Transmission Date: 20081010
  Serious: No
  Sender: FDA-Public Use
  Company Number: US-ABBOTT-08P-163-0443200-00

PATIENT
  Sex: Female
  Weight: 100 kg

DRUGS (9)
  1. HUMIRA [Suspect]
     Indication: PSORIATIC ARTHROPATHY
     Route: 058
     Dates: start: 20071130, end: 20080307
  2. EPINEPHRINE [Concomitant]
     Indication: HYPERSENSITIVITY
  3. LEVOTHYROXINE SODIUM [Concomitant]
     Indication: HYPOTHYROIDISM
     Route: 048
  4. TIAMTERENE/HCTZ [Concomitant]
     Indication: SINUS TACHYCARDIA
     Route: 048
  5. GENTEAL EYE DROPS [Concomitant]
     Indication: DRY EYE
     Route: 047
  6. MAGNESIUM CHLORIDE ANHYDROUS [Concomitant]
     Indication: SINUS TACHYCARDIA
  7. POTASSIUM CHLORIDE [Concomitant]
     Indication: SINUS TACHYCARDIA
  8. VERAPAMIL [Concomitant]
     Indication: SINUS TACHYCARDIA
  9. NORATITE CREAM [Concomitant]
     Indication: ROSACEA

REACTIONS (4)
  - BRONCHITIS [None]
  - NASOPHARYNGITIS [None]
  - PYREXIA [None]
  - THROAT IRRITATION [None]
